FAERS Safety Report 5662947-8 (Version None)
Quarter: 2008Q1

REPORT INFORMATION
  Report Type: 
  Country: None (occurrence: None)
  Receive Date: 20080313
  Receipt Date: 20080306
  Transmission Date: 20080703
  Serious: Yes (Death, Hospitalization)
  Sender: FDA-Public Use
  Company Number: NL-ROCHE-552026

PATIENT
  Sex: Male

DRUGS (3)
  1. XELODA [Suspect]
     Indication: COLON CANCER
     Route: 065
  2. AVASTIN [Suspect]
     Indication: COLON CANCER
     Dosage: FORM: INFUSION
     Route: 065
  3. OXALIPLATIN [Suspect]
     Indication: COLON CANCER
     Route: 065

REACTIONS (2)
  - DEATH [None]
  - EMBOLISM [None]
